APPROVED DRUG PRODUCT: DESONIDE
Active Ingredient: DESONIDE
Strength: 0.05%
Dosage Form/Route: GEL;TOPICAL
Application: A202470 | Product #001
Applicant: SENORES PHARMACEUTICALS INC
Approved: May 11, 2020 | RLD: No | RS: Yes | Type: RX